FAERS Safety Report 14163335 (Version 1)
Quarter: 2017Q4

REPORT INFORMATION
  Report Type: Spontaneous
  Country: CN (occurrence: CN)
  Receive Date: 20171106
  Receipt Date: 20171106
  Transmission Date: 20180321
  Serious: Yes (Hospitalization, Other)
  Sender: FDA-Public Use
  Company Number: CN-GLAXOSMITHKLINE-CN2017GSK167904

PATIENT
  Age: 24 Year
  Sex: Male
  Weight: 86 kg

DRUGS (8)
  1. LAMOTRIGINE. [Suspect]
     Active Substance: LAMOTRIGINE
     Indication: ENCEPHALITIS VIRAL
     Dosage: UNK
  2. LAMOTRIGINE. [Suspect]
     Active Substance: LAMOTRIGINE
     Indication: EPILEPSY
     Dosage: UNK
  3. LEVETIRACETAM. [Concomitant]
     Active Substance: LEVETIRACETAM
     Indication: ENCEPHALITIS VIRAL
  4. PREDNISONE. [Concomitant]
     Active Substance: PREDNISONE
     Indication: ENCEPHALITIS VIRAL
  5. SODIUM VALPROATE AGUETTANT [Concomitant]
     Indication: ENCEPHALITIS VIRAL
  6. PREDNISONE. [Concomitant]
     Active Substance: PREDNISONE
     Indication: EPILEPSY
  7. LEVETIRACETAM. [Concomitant]
     Active Substance: LEVETIRACETAM
     Indication: EPILEPSY
  8. SODIUM VALPROATE AGUETTANT [Concomitant]
     Indication: EPILEPSY

REACTIONS (13)
  - Papule [Recovering/Resolving]
  - Lip erosion [Recovering/Resolving]
  - Seizure [Recovering/Resolving]
  - Aspergillus infection [Recovering/Resolving]
  - Condition aggravated [Recovering/Resolving]
  - Pyrexia [Recovering/Resolving]
  - Blister [Recovering/Resolving]
  - Pruritus [Recovering/Resolving]
  - Pneumonia fungal [Recovering/Resolving]
  - Skin plaque [Recovering/Resolving]
  - Toxic epidermal necrolysis [Recovering/Resolving]
  - Erythema [Recovering/Resolving]
  - Pain [Recovering/Resolving]
